FAERS Safety Report 5637791-8 (Version None)
Quarter: 2008Q1

REPORT INFORMATION
  Report Type: 
  Country: None (occurrence: None)
  Receive Date: 20080219
  Receipt Date: 20080204
  Transmission Date: 20080703
  Serious: Yes (Hospitalization)
  Sender: FDA-Public Use
  Company Number: 013402

PATIENT
  Sex: Male

DRUGS (4)
  1. PRIALT [Suspect]
     Indication: HEADACHE
     Dosage: 0.86 UG, ONCE/HOUR, INTRATHECAL
     Route: 037
     Dates: start: 20070917
  2. PRIALT [Suspect]
     Indication: MUSCLE SPASMS
     Dosage: 0.86 UG, ONCE/HOUR, INTRATHECAL
     Route: 037
     Dates: start: 20070917
  3. PRIALT [Suspect]
     Indication: NEUROPATHY PERIPHERAL
     Dosage: 0.86 UG, ONCE/HOUR, INTRATHECAL
     Route: 037
     Dates: start: 20070917
  4. CLONIDINE [Concomitant]

REACTIONS (2)
  - NERVOUS SYSTEM DISORDER [None]
  - OVERDOSE [None]
